FAERS Safety Report 6408627-2 (Version None)
Quarter: 2009Q4

REPORT INFORMATION
  Report Type: 
  Country: None (occurrence: None)
  Receive Date: 20091021
  Receipt Date: 20091009
  Transmission Date: 20100525
  Serious: Yes (Other)
  Sender: FDA-Public Use
  Company Number: FR-PFIZER INC-2009281414

PATIENT

DRUGS (3)
  1. SUTENT [Suspect]
     Indication: RENAL CANCER
     Dosage: 37.5 MG, 4 WEEKS OUT OF 6
  2. TRAMADOL [Concomitant]
  3. OMEPRAZOLE [Concomitant]

REACTIONS (3)
  - BURNING SENSATION [None]
  - PRURITUS [None]
  - RASH MACULO-PAPULAR [None]
